FAERS Safety Report 6425894-X (Version None)
Quarter: 2009Q4

REPORT INFORMATION
  Report Type: 
  Country: None (occurrence: None)
  Receive Date: 20091029
  Receipt Date: 20091013
  Transmission Date: 20100525
  Serious: Yes (Hospitalization, Other)
  Sender: FDA-Public Use
  Company Number: 2007S1007417

PATIENT
  Age: 59 Year
  Sex: Female

DRUGS (15)
  1. PHOSPHOSODA FLAVOR NOT SPECIFIED [Suspect]
     Indication: COLONOSCOPY
     Dosage: X1;PO
     Route: 048
     Dates: start: 20051011, end: 20051011
  2. LISINOPRIL [Concomitant]
  3. ATENOLOL [Concomitant]
  4. ZOCOR [Concomitant]
  5. ADVAIR DISKUS 100/50 [Concomitant]
  6. ALBUTEROL [Concomitant]
  7. ALLEGRA [Concomitant]
  8. PREMARIN [Concomitant]
  9. ASPIRIN [Concomitant]
  10. MIDRIN /00450801/ [Concomitant]
  11. STOOL SOFTENER [Concomitant]
  12. CALCIUM [Concomitant]
  13. GLUCOSAMINE/CHONDROITIN /01625901/ [Concomitant]
  14. CENTRUM SILVER /01292501/ [Concomitant]
  15. IBUPROFEN [Concomitant]

REACTIONS (5)
  - ABDOMINAL DISCOMFORT [None]
  - DEHYDRATION [None]
  - DRUG TOXICITY [None]
  - RENAL FAILURE ACUTE [None]
  - RENAL TUBULAR NECROSIS [None]
